FAERS Safety Report 24898505 (Version 1)
Quarter: 2025Q1

REPORT INFORMATION
  Report Type: Report from Study
  Country: CA (occurrence: CA)
  Receive Date: 20250129
  Receipt Date: 20250129
  Transmission Date: 20250408
  Serious: Yes (Other)
  Sender: TAKEDA
  Company Number: CA-TAKEDA-2025TUS007379

PATIENT
  Sex: Male

DRUGS (9)
  1. VEDOLIZUMAB [Suspect]
     Active Substance: VEDOLIZUMAB
     Indication: Crohn^s disease
  2. LISINOPRIL [Concomitant]
     Active Substance: LISINOPRIL
  3. METOPROLOL [Concomitant]
     Active Substance: METOPROLOL
  4. ATORVASTATIN [Concomitant]
     Active Substance: ATORVASTATIN
  5. CLOPIDOGREL [Concomitant]
     Active Substance: CLOPIDOGREL BISULFATE
  6. VITAMIN B12 [Concomitant]
     Active Substance: CYANOCOBALAMIN
  7. ALLOPURINOL [Concomitant]
     Active Substance: ALLOPURINOL
  8. BUDESONIDE [Concomitant]
     Active Substance: BUDESONIDE
  9. PANTOPRAZOLE [Concomitant]
     Active Substance: PANTOPRAZOLE

REACTIONS (8)
  - Crohn^s disease [Unknown]
  - Pulmonary fibrosis [Unknown]
  - Arteriosclerosis [Unknown]
  - Atelectasis [Unknown]
  - Aortic valve calcification [Unknown]
  - Mitral valve calcification [Unknown]
  - Renal cyst [Unknown]
  - Diverticulum intestinal [Unknown]
